FAERS Safety Report 7646455-0 (Version None)
Quarter: 2011Q3

REPORT INFORMATION
  Report Type: 
  Country: None (occurrence: None)
  Receive Date: 20110725
  Receipt Date: 20110719
  Transmission Date: 20111222
  Serious: Yes (Death, Other)
  Sender: FDA-Public Use
  Company Number: 2011SP028964

PATIENT

DRUGS (12)
  1. HYDROCHLORIDE [Concomitant]
  2. LEVOMEPROMAZINE MALEATE (LEVOMEPROMAZINE MALEATE) [Suspect]
     Indication: PRODUCT USED FOR UNKNOWN INDICATION
     Dosage: 25 MG;QD;PO
     Route: 048
     Dates: start: 20090421, end: 20110616
  3. ZOPICLONE (ZOPICLONE) [Suspect]
     Indication: PRODUCT USED FOR UNKNOWN INDICATION
     Dosage: 10 MG;QD;PO
     Route: 048
     Dates: start: 20090421, end: 20110616
  4. FLUNITRAZEPAM (FLUNITRAZEPAM) [Suspect]
     Indication: PRODUCT USED FOR UNKNOWN INDICATION
     Dosage: 4 MG;QD;PO
     Route: 048
     Dates: start: 20090421, end: 20110616
  5. MIRTAZAPINE [Suspect]
     Indication: DEPRESSION
     Dosage: 15 MG;QD;PO, 30MG;QD;PO, 45 MG;QD;PO
     Route: 048
     Dates: start: 20101130, end: 20101213
  6. MIRTAZAPINE [Suspect]
     Indication: SLEEP DISORDER
     Dosage: 15 MG;QD;PO, 30MG;QD;PO, 45 MG;QD;PO
     Route: 048
     Dates: start: 20101130, end: 20101213
  7. MIRTAZAPINE [Suspect]
     Indication: DEPRESSION
     Dosage: 15 MG;QD;PO, 30MG;QD;PO, 45 MG;QD;PO
     Route: 048
     Dates: start: 20101214, end: 20110516
  8. MIRTAZAPINE [Suspect]
     Indication: SLEEP DISORDER
     Dosage: 15 MG;QD;PO, 30MG;QD;PO, 45 MG;QD;PO
     Route: 048
     Dates: start: 20101214, end: 20110516
  9. MIRTAZAPINE [Suspect]
     Indication: DEPRESSION
     Dosage: 15 MG;QD;PO, 30MG;QD;PO, 45 MG;QD;PO
     Route: 048
     Dates: start: 20110517, end: 20110616
  10. MIRTAZAPINE [Suspect]
     Indication: SLEEP DISORDER
     Dosage: 15 MG;QD;PO, 30MG;QD;PO, 45 MG;QD;PO
     Route: 048
     Dates: start: 20110517, end: 20110616
  11. CHLORPROMAZINE HYDROCHLORIDE/ PROMETHAZINE HYDROCHLORIDE/ PHENOBARBITA [Suspect]
     Indication: PRODUCT USED FOR UNKNOWN INDICATION
     Dosage: 1 DF;QD;PO
     Route: 048
     Dates: start: 20090421, end: 20110616
  12. RAMOSETRON [Concomitant]

REACTIONS (4)
  - COMPLETED SUICIDE [None]
  - MULTIPLE DRUG OVERDOSE INTENTIONAL [None]
  - HAEMATEMESIS [None]
  - TOXICITY TO VARIOUS AGENTS [None]
